FAERS Safety Report 20495845 (Version 1)
Quarter: 2022Q1

REPORT INFORMATION
  Report Type: Report from Study
  Country: EG (occurrence: EG)
  Receive Date: 20220221
  Receipt Date: 20220221
  Transmission Date: 20220423
  Serious: Yes (Other)
  Sender: FDA-Public Use
  Company Number: EG-NOVARTISPH-NVSC2022EG037920

PATIENT
  Age: 41 Year
  Sex: Female

DRUGS (16)
  1. KISQALI [Suspect]
     Active Substance: RIBOCICLIB
     Indication: Breast cancer metastatic
     Dosage: 3 DOSAGE FORM, Q8H (3 WEEKS THEN 1 WEEK OFF)
     Route: 048
     Dates: start: 20211226
  2. KISQALI [Suspect]
     Active Substance: RIBOCICLIB
     Indication: Lung cancer metastatic
  3. TEGRETOL [Concomitant]
     Active Substance: CARBAMAZEPINE
     Indication: Nervous system disorder
     Dosage: 1 DOSAGE FORM, BID
     Route: 065
     Dates: start: 202201
  4. FEMARA [Concomitant]
     Active Substance: LETROZOLE
     Indication: Breast cancer metastatic
     Dosage: 1 DOSAGE FORM, QD (AT NIGHT)
     Route: 065
     Dates: start: 202107
  5. FEMARA [Concomitant]
     Active Substance: LETROZOLE
     Indication: Lung cancer metastatic
  6. ZOLADEX [Concomitant]
     Active Substance: GOSERELIN ACETATE
     Indication: Breast cancer metastatic
     Dosage: ONE INJECTION PER MONTH
     Route: 065
     Dates: start: 202106
  7. ZOLADEX [Concomitant]
     Active Substance: GOSERELIN ACETATE
     Indication: Lung cancer metastatic
  8. CONCOR 5 PLUS [Concomitant]
     Indication: Hypertension
     Dosage: 1 DOSAGE FORM, QD (AT MORNING)
     Route: 065
     Dates: start: 202102
  9. CONCOR 5 PLUS [Concomitant]
     Indication: Cardiac disorder
  10. JUSPRIN [Concomitant]
     Indication: Hypertension
     Dosage: 1 DOSAGE FORM, QD (AFTER LUNCH)
     Route: 065
     Dates: start: 202102
  11. JUSPRIN [Concomitant]
     Indication: Cardiac disorder
  12. CERVITAM [Concomitant]
     Indication: Nervous system disorder
     Dosage: 3 DOSAGE FORM (3 TABLETS PER DAY)
     Route: 065
     Dates: start: 202201
  13. MULTIRELAX [Concomitant]
     Indication: Nervous system disorder
     Dosage: UNK UNK, BID
     Route: 065
     Dates: start: 202201
  14. PANADOL [Concomitant]
     Active Substance: ACETAMINOPHEN
     Indication: Nervous system disorder
     Dosage: UNK (WHEN NEEDED)
     Route: 065
     Dates: start: 202201
  15. ESCITA [Concomitant]
     Indication: Nervous system disorder
     Dosage: 1 DOSAGE FORM, QD
     Route: 065
     Dates: start: 202201
  16. ESCITA [Concomitant]
     Indication: Sedative therapy

REACTIONS (16)
  - Burning sensation [Recovered/Resolved]
  - Oral discomfort [Recovered/Resolved]
  - Blood pressure increased [Recovered/Resolved]
  - Haemorrhage [Recovered/Resolved]
  - Ocular discomfort [Recovered/Resolved]
  - Hyperhidrosis [Recovered/Resolved]
  - Thrombosis [Recovered/Resolved]
  - Fatigue [Recovered/Resolved]
  - Back pain [Recovered/Resolved]
  - Urticaria [Recovered/Resolved]
  - Movement disorder [Recovering/Resolving]
  - Hypoaesthesia [Recovering/Resolving]
  - Electric shock sensation [Recovering/Resolving]
  - Swelling [Recovering/Resolving]
  - Hypoaesthesia oral [Recovered/Resolved]
  - Pruritus [Recovered/Resolved]

NARRATIVE: CASE EVENT DATE: 20211201
